FAERS Safety Report 5716538-0 (Version None)
Quarter: 2008Q2

REPORT INFORMATION
  Report Type: 
  Country: None (occurrence: None)
  Receive Date: 20080424
  Receipt Date: 20080414
  Transmission Date: 20081010
  Serious: Yes (Hospitalization)
  Sender: FDA-Public Use
  Company Number: IT-ELI_LILLY_AND_COMPANY-IT200804004072

PATIENT
  Sex: Female

DRUGS (3)
  1. BYETTA [Suspect]
     Indication: TYPE 2 DIABETES MELLITUS
     Dosage: 5 UG, DAILY (1/D)
     Route: 058
     Dates: start: 20080321, end: 20080328
  2. METFORMIN HCL [Concomitant]
     Dosage: 2000 MG, UNK
     Route: 048
     Dates: start: 20071010, end: 20080328
  3. NOVONORM [Concomitant]
     Dosage: 6 MG, UNK
     Route: 048
     Dates: start: 20080215, end: 20080328

REACTIONS (2)
  - CONFUSIONAL STATE [None]
  - VOMITING [None]
